FAERS Safety Report 8343327-3 (Version None)
Quarter: 2012Q2

REPORT INFORMATION
  Report Type: 
  Country: None (occurrence: None)
  Receive Date: 20120508
  Receipt Date: 20120503
  Transmission Date: 20120825
  Serious: Yes (Hospitalization)
  Sender: FDA-Public Use
  Company Number: PHHY2012DE038012

PATIENT
  Age: 71 Year
  Sex: Male

DRUGS (3)
  1. CORTISONE ACETATE [Concomitant]
     Dates: start: 20120503
  2. SANDIMMUNE [Suspect]
     Indication: PROPHYLAXIS AGAINST TRANSPLANT REJECTION
     Dosage: 100 MG, UNK
     Route: 048
  3. CORTISONE ACETATE [Concomitant]
     Indication: PROPHYLAXIS AGAINST TRANSPLANT REJECTION
     Route: 048

REACTIONS (7)
  - COUGH [None]
  - BRONCHIAL INJURY [None]
  - ERYTHEMA [None]
  - ASPIRATION [None]
  - SENSATION OF FOREIGN BODY [None]
  - BRONCHITIS [None]
  - DYSPNOEA [None]
